FAERS Safety Report 9351550 (Version 1)
Quarter: 2013Q2

REPORT INFORMATION
  Report Type: Report from Study
  Country: AU (occurrence: AU)
  Receive Date: 20130617
  Receipt Date: 20130617
  Transmission Date: 20140414
  Serious: Yes (Hospitalization, Other)
  Sender: FDA-Public Use
  Company Number: PHHY2013AU059007

PATIENT
  Age: 42 Year
  Sex: Male
  Weight: 78 kg

DRUGS (13)
  1. CLOZARIL [Suspect]
     Dosage: 12.5 MG, UNK
     Dates: start: 20130523
  2. CLOZARIL [Suspect]
     Dosage: 50MG  IN DAY AND 125MG IN NIGHT
     Dates: start: 20130603
  3. CLOZARIL [Suspect]
     Dosage: 50MG  IN DAY AND 125MG IN NIGHT
     Dates: start: 20130604
  4. CLOZARIL [Suspect]
     Dosage: 50MG  IN DAY AND 125MG IN NIGHT
     Dates: start: 20130603
  5. CLOZARIL [Suspect]
     Dosage: 50 MG, DAY
     Dates: start: 20130607, end: 20130607
  6. OLANZAPINE [Concomitant]
     Dosage: 10 MG, BID
     Dates: start: 20130515
  7. OLANZAPINE [Concomitant]
     Dosage: 5 UNK, UNK
     Dates: end: 20130604
  8. OLANZAPINE [Concomitant]
     Dosage: 10 MG, BID
     Dates: start: 20130515
  9. OLANZAPINE [Concomitant]
     Dosage: 5 UNK, UNK
  10. ZUCLOPENTHIXOL [Concomitant]
     Dosage: 400 MG, UNK
     Dates: end: 20130604
  11. BENZODIAZEPINES [Concomitant]
  12. TAMIFLU [Concomitant]
     Dosage: 75 MG, BID
  13. AUGMENTINE [Concomitant]
     Dosage: 1 DF, BID

REACTIONS (25)
  - Myocarditis [Unknown]
  - Malaise [Not Recovered/Not Resolved]
  - C-reactive protein increased [Unknown]
  - Troponin increased [Unknown]
  - Suicidal behaviour [Unknown]
  - White blood cell count increased [Recovered/Resolved]
  - Nausea [Recovered/Resolved]
  - Vomiting [Recovered/Resolved]
  - Diarrhoea [Recovered/Resolved]
  - Cough [Not Recovered/Not Resolved]
  - Pyrexia [Recovered/Resolved]
  - Chills [Unknown]
  - Myalgia [Not Recovered/Not Resolved]
  - Pain [Unknown]
  - Tachycardia [Recovered/Resolved]
  - Viral upper respiratory tract infection [Unknown]
  - Gastroenteritis [Unknown]
  - Headache [Not Recovered/Not Resolved]
  - Neutrophilia [Recovered/Resolved]
  - Chest pain [Recovered/Resolved]
  - Epigastric discomfort [Unknown]
  - Psychotic disorder [Not Recovered/Not Resolved]
  - Hallucination, auditory [Unknown]
  - Blood pressure decreased [Unknown]
  - Eosinophil count increased [Unknown]
